FAERS Safety Report 9394118 (Version 1)
Quarter: 2013Q3

REPORT INFORMATION
  Report Type: Spontaneous
  Country: FR (occurrence: FR)
  Receive Date: 20130710
  Receipt Date: 20130710
  Transmission Date: 20140515
  Serious: Yes (Death, Other)
  Sender: FDA-Public Use
  Company Number: FR-RB-055806-13

PATIENT
  Age: 25 Year
  Sex: Male

DRUGS (3)
  1. SUBUTEX [Suspect]
     Indication: PRODUCT USED FOR UNKNOWN INDICATION
     Dosage: UNKNOWN DOSAGE DETAILS
     Route: 065
     Dates: start: 20110423, end: 20110423
  2. ALCOHOL [Suspect]
     Indication: PRODUCT USED FOR UNKNOWN INDICATION
     Dosage: DOSING DETAILS UNKNOWN
     Route: 065
     Dates: start: 20110423, end: 20110423
  3. ANTIDEPRESSANT [Suspect]
     Indication: PRODUCT USED FOR UNKNOWN INDICATION
     Dosage: DOSING DETAILS UNKNOWN
     Route: 065
     Dates: start: 20110423, end: 20110423

REACTIONS (6)
  - Substance abuse [Recovered/Resolved]
  - Drug abuse [Recovered/Resolved]
  - Therapy naive [Fatal]
  - Toxicity to various agents [Fatal]
  - Coma [Fatal]
  - Pulmonary oedema [Fatal]
